FAERS Safety Report 7720611-5 (Version None)
Quarter: 2011Q3

REPORT INFORMATION
  Report Type: 
  Country: None (occurrence: None)
  Receive Date: 20110831
  Receipt Date: 20110819
  Transmission Date: 20111222
  Serious: Yes (Other)
  Sender: FDA-Public Use
  Company Number: PHEH2011US00448

PATIENT
  Sex: Female

DRUGS (4)
  1. COREG [Concomitant]
     Dosage: 25 MG, BID
  2. ZOMETA [Suspect]
  3. DIOVAN [Concomitant]
     Dosage: 80 MG, DAILY
  4. ASPIRIN [Concomitant]

REACTIONS (11)
  - PAIN [None]
  - DISABILITY [None]
  - ANXIETY [None]
  - BREAST CANCER [None]
  - OSTEONECROSIS OF JAW [None]
  - DEFORMITY [None]
  - IMPAIRED WORK ABILITY [None]
  - DECREASED INTEREST [None]
  - AORTIC ANEURYSM [None]
  - CARDIAC FAILURE CONGESTIVE [None]
  - HYPERLIPIDAEMIA [None]
